FAERS Safety Report 21695895 (Version 1)
Quarter: 2022Q4

REPORT INFORMATION
  Report Type: Spontaneous
  Country: US (occurrence: None)
  Receive Date: 20221206
  Receipt Date: 20221206
  Transmission Date: 20230113
  Serious: Yes (Hospitalization)
  Sender: FDA-Public Use
  Company Number: None

PATIENT
  Age: 51 Year
  Sex: Female

DRUGS (5)
  1. ZARXIO [Suspect]
     Active Substance: FILGRASTIM-SNDZ
     Indication: Acute promyelocytic leukaemia
     Dosage: OTHER STRENGTH : 480 MCG/0.8ML ;?OTHER QUANTITY : 480 MCG/0.8ML ;?FREQUENCY : DAILY;?
     Route: 058
  2. CALCIUM 500 TAB +D [Concomitant]
  3. FERROUS SULF TAB 325MG [Concomitant]
  4. MAGNESIUM TAB 250MG [Concomitant]
  5. WELLBUTRIN TAB 100MG SR [Concomitant]

REACTIONS (1)
  - Chemotherapy [None]

NARRATIVE: CASE EVENT DATE: 20221122
